FAERS Safety Report 9527480 (Version 1)
Quarter: 2013Q3

REPORT INFORMATION
  Report Type: Spontaneous
  Country: BR (occurrence: BR)
  Receive Date: 20130917
  Receipt Date: 20130917
  Transmission Date: 20140515
  Serious: Yes (Other)
  Sender: FDA-Public Use
  Company Number: BR-ASTRAZENECA-2013SE68330

PATIENT
  Sex: Female

DRUGS (1)
  1. CANDESARTAN CILEXETIL [Suspect]
     Dosage: GENERIC, 16MG OF UNKNOWN  FREQUENCY
     Route: 065

REACTIONS (1)
  - Blood pressure increased [Unknown]
